FAERS Safety Report 4503468-5 (Version None)
Quarter: 2004Q4

REPORT INFORMATION
  Report Type: 
  Country: None (occurrence: None)
  Receive Date: 20041112
  Receipt Date: 20041102
  Transmission Date: 20050328
  Serious: Yes (Hospitalization, Disabling)
  Sender: FDA-Public Use
  Company Number: 2003186495JP

PATIENT
  Age: 66 Year
  Sex: Female
  Weight: 54.5 kg

DRUGS (4)
  1. FARMORUBICIN (EPIRUBICIN HYDROCHLORIDE) POWDER, STERILE [Suspect]
     Indication: BREAST CANCER
     Dosage: 130 MG, CYCLIC, IV DRIP
     Route: 041
     Dates: start: 20031106, end: 20031006
  2. CYCLOPHOSPHAMIDE [Suspect]
     Indication: BREAST CANCER
     Dosage: 900 MG, CYCLIC, IV DRIP
     Route: 041
     Dates: start: 20031106, end: 20031106
  3. DECADRON [Suspect]
     Indication: PREMEDICATION
     Dosage: 8 MG, QD, IV
     Route: 042
     Dates: start: 20031106, end: 20031106
  4. SEROTONE (AZASETRON HYDROCHLORIDE) [Suspect]
     Indication: VOMITING
     Dosage: 10 MG, QD, IV
     Route: 042
     Dates: start: 20031106, end: 20031106

REACTIONS (11)
  - ASTHENIA [None]
  - BLOOD VISCOSITY INCREASED [None]
  - CEREBRAL INFARCTION [None]
  - DEHYDRATION [None]
  - DYSARTHRIA [None]
  - FALL [None]
  - HEMIPLEGIA [None]
  - PARALYSIS [None]
  - VOMITING [None]
  - WHEELCHAIR USER [None]
  - WHITE BLOOD CELL COUNT DECREASED [None]
